FAERS Safety Report 9110710 (Version 1)
Quarter: 2013Q1

REPORT INFORMATION
  Report Type: Spontaneous
  Country: US (occurrence: US)
  Receive Date: 20130219
  Receipt Date: 20130219
  Transmission Date: 20140127
  Serious: No
  Sender: FDA-Public Use
  Company Number: US-BRISTOL-MYERS SQUIBB COMPANY-16859217

PATIENT
  Age: 73 Year
  Sex: Female

DRUGS (6)
  1. ORENCIA [Suspect]
     Indication: RHEUMATOID ARTHRITIS
     Dosage: 714.0
     Route: 042
     Dates: start: 20120813, end: 20120813
  2. VITAMIN D3 [Concomitant]
  3. CALCIUM [Concomitant]
  4. SIMVASTATIN [Concomitant]
  5. PREDNISONE [Concomitant]
  6. MVI [Concomitant]

REACTIONS (1)
  - Urticaria [Recovered/Resolved]
